FAERS Safety Report 8386311-6 (Version None)
Quarter: 2012Q2

REPORT INFORMATION
  Report Type: 
  Country: None (occurrence: None)
  Receive Date: 20120523
  Receipt Date: 20120508
  Transmission Date: 20120825
  Serious: Yes (Other)
  Sender: FDA-Public Use
  Company Number: FK201201378

PATIENT
  Age: 70 Year
  Sex: Male

DRUGS (2)
  1. GEMCITABINE [Suspect]
     Indication: LUNG ADENOCARCINOMA METASTATIC
  2. CARBOPLATIN [Suspect]
     Indication: LUNG ADENOCARCINOMA METASTATIC

REACTIONS (7)
  - NEUTROPENIA [None]
  - PARANEOPLASTIC SYNDROME [None]
  - CONFUSIONAL STATE [None]
  - PERIORBITAL OEDEMA [None]
  - RENAL IMPAIRMENT [None]
  - HISTIOCYTIC NECROTISING LYMPHADENITIS [None]
  - HEPATIC FUNCTION ABNORMAL [None]
